FAERS Safety Report 15957050 (Version 2)
Quarter: 2019Q1

REPORT INFORMATION
  Report Type: Spontaneous
  Country: FR (occurrence: FR)
  Receive Date: 20190213
  Receipt Date: 20190227
  Transmission Date: 20190417
  Serious: Yes (Hospitalization)
  Sender: FDA-Public Use
  Company Number: FR-PROVELL PHARMACEUTICALS-2062611

PATIENT
  Age: 73 Year
  Sex: Female

DRUGS (2)
  1. STILNOX [Concomitant]
     Active Substance: ZOLPIDEM TARTRATE
     Dates: start: 1994
  2. EUTHYROX [Suspect]
     Active Substance: LEVOTHYROXINE SODIUM
     Indication: POST PROCEDURAL HYPOTHYROIDISM
     Dates: start: 201811, end: 20190127

REACTIONS (4)
  - Gastrointestinal pain [Recovered/Resolved]
  - Headache [Recovered/Resolved]
  - Chest discomfort [Recovered/Resolved]
  - Blood thyroid stimulating hormone increased [None]

NARRATIVE: CASE EVENT DATE: 2018
